FAERS Safety Report 8983316 (Version 2)
Quarter: 2012Q4

REPORT INFORMATION
  Report Type: 
  Country: US (occurrence: US)
  Receive Date: 20121221
  Receipt Date: 20121231
  Transmission Date: 20130627
  Serious: Yes (Other)
  Sender: FDA-Public Use
  Company Number: US-ABBOTT-12P-163-1024989-00

PATIENT
  Age: 24 None
  Sex: Female

DRUGS (3)
  1. HUMIRA [Suspect]
     Indication: CROHN^S DISEASE
     Dates: start: 200711, end: 200903
  2. HUMIRA [Suspect]
     Dates: start: 200903
  3. HUMIRA [Suspect]
     Dates: end: 2012

REACTIONS (5)
  - Abortion spontaneous [Unknown]
  - Uterine infection [Unknown]
  - Urinary tract infection [Unknown]
  - Muscle spasms [Recovered/Resolved]
  - Pyrexia [Recovered/Resolved]
